FAERS Safety Report 9825538 (Version 2)
Quarter: 2014Q1

REPORT INFORMATION
  Report Type: Spontaneous
  Country: US (occurrence: None)
  Receive Date: 20131028
  Receipt Date: 20140115
  Transmission Date: 20141002
  Serious: Yes (Other)
  Sender: FDA-Public Use
  Company Number: 2013US002384

PATIENT
  Age: 72 Year
  Sex: Female
  Weight: 83 kg

DRUGS (8)
  1. ICLUSIG [Suspect]
     Indication: CHRONIC MYELOID LEUKAEMIA
     Route: 048
     Dates: start: 20130808, end: 20130813
  2. ATENOLOL (ATENOLOL) [Concomitant]
  3. LYRICA (PREGABALIN) [Concomitant]
  4. OMEGA 3 (FISH OIL) [Concomitant]
  5. LEVOTHYROXINE (LEVOTHYROXINE) [Concomitant]
  6. LEXAPRO (ESCITALOPRAM OXALATE) [Concomitant]
  7. VITAMIN E (VITAMIN E) [Concomitant]
  8. LANTUS (INSULIN GLARGINE) [Concomitant]

REACTIONS (9)
  - Hypertension [None]
  - Blood pressure increased [None]
  - Haematuria [None]
  - Urinary hesitation [None]
  - Feeling abnormal [None]
  - Blood glucose increased [None]
  - Headache [None]
  - Abdominal pain [None]
  - Nausea [None]
